FAERS Safety Report 8187461-X (Version None)
Quarter: 2012Q1

REPORT INFORMATION
  Report Type: 
  Country: None (occurrence: None)
  Receive Date: 20120217
  Receipt Date: 20120217
  Transmission Date: 20120608
  Serious: Yes (Other)
  Sender: FDA-Public Use
  Company Number: 2011SA004802

PATIENT
  Age: 21 Year
  Sex: Female

DRUGS (1)
  1. BENZACLIN [Suspect]
     Indication: ACNE
     Dosage: TWICE A DAY
     Dates: start: 19970101, end: 20030101

REACTIONS (3)
  - COLITIS ULCERATIVE [None]
  - RECTAL HAEMORRHAGE [None]
  - DRUG INEFFECTIVE [None]
